FAERS Safety Report 6826336-2 (Version None)
Quarter: 2010Q3

REPORT INFORMATION
  Report Type: 
  Country: None (occurrence: None)
  Receive Date: 20100709
  Receipt Date: 20100706
  Transmission Date: 20110219
  Serious: Yes (Death)
  Sender: FDA-Public Use
  Company Number: PHHY2010BR43978

PATIENT
  Sex: Male

DRUGS (1)
  1. ELIDEL [Suspect]

REACTIONS (1)
  - DEATH [None]
